FAERS Safety Report 4865875-0 (Version None)
Quarter: 2005Q4

REPORT INFORMATION
  Report Type: 
  Country: None (occurrence: None)
  Receive Date: 20051219
  Receipt Date: 20051205
  Transmission Date: 20060501
  Serious: Yes (Other)
  Sender: FDA-Public Use
  Company Number: 20051205VANCO0171

PATIENT
  Age: 87 Year
  Sex: Male
  Weight: 45 kg

DRUGS (13)
  1. VANCOMYCIN HCL [Suspect]
     Dosage: ORAL
     Route: 048
     Dates: start: 20050517
  2. ASPIRIN [Concomitant]
  3. BISOLVON (BROMHEXINE HYDROCHLORIDE) [Concomitant]
  4. THEO-DUR [Concomitant]
  5. CALBLOCK (AZELNIDIPINE) [Concomitant]
  6. BUFFERIN [Concomitant]
  7. MAGNESIUM OXIDE (MAGNESIUM OXIDE) [Concomitant]
  8. OLMETEC (OLMESARTAN MEDOXOMIL) [Concomitant]
  9. HICALIQ (HICALIQ) [Concomitant]
  10. VITAJECT (NEURONTIN FOR INJECTION) [Concomitant]
  11. LASIX [Concomitant]
  12. ELEMENMIC (ELEMENMIC) [Concomitant]
  13. AMIPAREN (AMIPAREN) [Concomitant]

REACTIONS (3)
  - CATHETER SITE ERYTHEMA [None]
  - DISSEMINATED INTRAVASCULAR COAGULATION [None]
  - GENERAL PHYSICAL CONDITION ABNORMAL [None]
